FAERS Safety Report 24308309 (Version 2)
Quarter: 2024Q4

REPORT INFORMATION
  Report Type: Spontaneous
  Country: PT (occurrence: PT)
  Receive Date: 20240911
  Receipt Date: 20241001
  Transmission Date: 20250115
  Serious: Yes (Hospitalization)
  Sender: ACCORD
  Company Number: PT-MLMSERVICE-20240826-PI171523-00158-1

PATIENT
  Age: 47 Year
  Sex: Female

DRUGS (6)
  1. FLUOROURACIL [Suspect]
     Active Substance: FLUOROURACIL
     Indication: Ductal adenocarcinoma of pancreas
     Dosage: FIRST DAY OF THE FIRST CYCLE OF CHEMOTHERAPY
     Route: 042
     Dates: start: 20221227, end: 202212
  2. IRINOTECAN [Suspect]
     Active Substance: IRINOTECAN
     Indication: Ductal adenocarcinoma of pancreas
     Dosage: FIRST DAY OF THE FIRST CYCLE OF CHEMOTHERAPY
     Route: 042
     Dates: start: 20221227, end: 20221227
  3. OXALIPLATIN [Suspect]
     Active Substance: OXALIPLATIN
     Indication: Ductal adenocarcinoma of pancreas
     Dosage: FIRST DAY OF THE FIRST CYCLE OF CHEMOTHERAPY
     Route: 042
     Dates: start: 20221227, end: 20221227
  4. LEUCOVORIN [Suspect]
     Active Substance: LEUCOVORIN\LEUCOVORIN CALCIUM
     Indication: Ductal adenocarcinoma of pancreas
     Dosage: FIRST DAY OF THE FIRST CYCLE OF CHEMOTHERAPY
     Route: 042
     Dates: start: 20221227, end: 20221227
  5. DEXTROSE [Concomitant]
     Active Substance: DEXTROSE MONOHYDRATE
     Dosage: FIRST DAY OF THE FIRST CYCLE OF CHEMOTHERAPY; 85 MG/M2, 125 MG IN 250 ML OF 5% GLUCOSE
     Route: 042
     Dates: start: 20221227, end: 20221227
  6. SODIUM CHLORIDE [Concomitant]
     Active Substance: SODIUM CHLORIDE
     Dosage: ALSO RECEIVED 250 ML
     Route: 042
     Dates: start: 20221227, end: 20221227

REACTIONS (4)
  - Cytotoxic lesions of corpus callosum [Recovered/Resolved]
  - Ophthalmoplegia [Recovered/Resolved]
  - Toxic encephalopathy [Recovered/Resolved]
  - Off label use [Unknown]

NARRATIVE: CASE EVENT DATE: 20221229
